FAERS Safety Report 12585303 (Version 2)
Quarter: 2016Q3

REPORT INFORMATION
  Report Type: Spontaneous
  Country: US (occurrence: US)
  Receive Date: 20160723
  Receipt Date: 20160912
  Transmission Date: 20161109
  Serious: Yes (Life-Threatening, Hospitalization, Other)
  Sender: FDA-Public Use
  Company Number: PHEH2016US018049

PATIENT
  Age: 71 Year
  Sex: Male
  Weight: 74.5 kg

DRUGS (2)
  1. RAPAFLO [Concomitant]
     Active Substance: SILODOSIN
     Indication: PRODUCT USED FOR UNKNOWN INDICATION
     Dosage: 8 MG, QD
     Route: 048
  2. JADENU [Suspect]
     Active Substance: DEFERASIROX
     Indication: IRON OVERLOAD
     Dosage: 1080 MG, QD
     Route: 048
     Dates: start: 20160114, end: 20160722

REACTIONS (11)
  - Gastrointestinal haemorrhage [Unknown]
  - Haematochezia [Unknown]
  - Haemoglobin decreased [Unknown]
  - Thrombocytopenia [Unknown]
  - Platelet count decreased [Unknown]
  - Anaemia [Unknown]
  - Faeces discoloured [Unknown]
  - Myelodysplastic syndrome [Unknown]
  - Presyncope [Unknown]
  - Loss of consciousness [Unknown]
  - Hypotension [Unknown]

NARRATIVE: CASE EVENT DATE: 201604
